FAERS Safety Report 4715291-7 (Version None)
Quarter: 2005Q3

REPORT INFORMATION
  Report Type: 
  Country: None (occurrence: None)
  Receive Date: 20050715
  Receipt Date: 20050708
  Transmission Date: 20060218
  Serious: Yes (Hospitalization)
  Sender: FDA-Public Use
  Company Number: 200511442DE

PATIENT
  Age: 31 Year
  Sex: Female

DRUGS (6)
  1. DOCETAXEL [Suspect]
     Indication: BREAST CANCER
     Route: 042
     Dates: start: 20050629, end: 20050629
  2. ADRIAMYCIN PFS [Suspect]
     Indication: BREAST CANCER
     Dates: start: 20050629, end: 20050629
  3. CYCLOPHOSPHAMIDE [Suspect]
     Indication: BREAST CANCER
     Dates: start: 20050629, end: 20050629
  4. FORTECORTIN [Concomitant]
     Dates: end: 20050629
  5. KEVATRIL [Concomitant]
     Dates: end: 20050629
  6. UROMITEXAN [Concomitant]
     Dates: end: 20050629

REACTIONS (4)
  - CARDIOVASCULAR DISORDER [None]
  - DEPRESSION [None]
  - DIARRHOEA [None]
  - HYPOTENSION [None]
